FAERS Safety Report 10622055 (Version 1)
Quarter: 2014Q4

REPORT INFORMATION
  Report Type: Spontaneous
  Country: US (occurrence: None)
  Receive Date: 20141201
  Receipt Date: 20141201
  Transmission Date: 20150529
  Serious: Yes (Disabling)
  Sender: FDA-Public Use
  Company Number: None

PATIENT
  Age: 44 Year
  Sex: Male
  Weight: 92.53 kg

DRUGS (1)
  1. VIVITROL [Suspect]
     Active Substance: NALTREXONE
     Indication: ALCOHOL ABUSE
     Dosage: 380MG MONTHLY INTO THE MUSCLE
     Dates: start: 20141117, end: 20141117

REACTIONS (6)
  - Nausea [None]
  - Suicidal ideation [None]
  - Insomnia [None]
  - Gait disturbance [None]
  - Injection site mass [None]
  - Depression [None]

NARRATIVE: CASE EVENT DATE: 20141117
